FAERS Safety Report 8598283-X (Version None)
Quarter: 2012Q3

REPORT INFORMATION
  Report Type: 
  Country: None (occurrence: None)
  Receive Date: 20120816
  Receipt Date: 20120810
  Transmission Date: 20120928
  Serious: Yes (Hospitalization, Other)
  Sender: FDA-Public Use
  Company Number: PHHO2012DK010002

PATIENT
  Sex: Male
  Weight: 93.3 kg

DRUGS (6)
  1. TASIGNA [Interacting]
     Route: 048
     Dates: start: 20120728
  2. CIPROFLOXACIN [Interacting]
     Indication: EPIDIDYMITIS
     Dosage: 500 MG, BID
     Dates: start: 20120710
  3. TASIGNA [Interacting]
     Dosage: NO TREATMENT RECEIVED
     Dates: start: 20120721, end: 20120727
  4. PANTOPRAZOLE SODIUM [Concomitant]
     Indication: OESOPHAGITIS
     Dosage: 40 MG, QD
     Dates: start: 20101018
  5. METFORMIN HYDROCHLORIDE [Concomitant]
     Indication: DIABETES MELLITUS
     Dosage: 1000 MG, BID
     Dates: start: 20090826
  6. TASIGNA [Suspect]
     Indication: ACUTE LYMPHOCYTIC LEUKAEMIA
     Dosage: 300 MG, BID
     Route: 048
     Dates: start: 20080724, end: 20120720

REACTIONS (6)
  - INSOMNIA [None]
  - VISUAL IMPAIRMENT [None]
  - HYPERHIDROSIS [None]
  - EPIDIDYMITIS [None]
  - RESTLESSNESS [None]
  - DRUG INTERACTION [None]
